FAERS Safety Report 23328537 (Version 5)
Quarter: 2024Q2

REPORT INFORMATION
  Report Type: Report from Study
  Country: US (occurrence: US)
  Receive Date: 20231221
  Receipt Date: 20240516
  Transmission Date: 20240716
  Serious: No
  Sender: FDA-Public Use
  Company Number: US-ACADIA PHARMACEUTICALS INC.-ACA-2023-TRF-005497

PATIENT
  Sex: Female

DRUGS (6)
  1. DAYBUE [Suspect]
     Active Substance: TROFINETIDE
     Indication: Rett syndrome
     Dosage: 25 MILLILITER, BID
     Route: 048
  2. DAYBUE [Suspect]
     Active Substance: TROFINETIDE
     Dosage: NOT ABLE TO GET THE FULL DOSE ON SOME DAYS
     Route: 048
  3. DAYBUE [Suspect]
     Active Substance: TROFINETIDE
     Dosage: 25 MILLILITER, BID
     Route: 048
  4. DAYBUE [Suspect]
     Active Substance: TROFINETIDE
     Dosage: 5 MILLILITER, BID
     Route: 048
  5. DAYBUE [Suspect]
     Active Substance: TROFINETIDE
     Dosage: 25 MILLILITER, BID
     Route: 048
  6. MEDICAL FOOD [Concomitant]
     Active Substance: MEDICAL FOOD
     Indication: Faeces soft

REACTIONS (14)
  - Ill-defined disorder [Not Recovered/Not Resolved]
  - Faeces soft [Not Recovered/Not Resolved]
  - Gastroenteritis viral [Not Recovered/Not Resolved]
  - Hypophagia [Unknown]
  - Underdose [Not Recovered/Not Resolved]
  - Gastroenteritis viral [Recovering/Resolving]
  - Gastroenteritis viral [Recovered/Resolved]
  - Insomnia [Recovered/Resolved]
  - Influenza [Recovered/Resolved]
  - Product dose omission issue [Recovered/Resolved]
  - Vomiting [Not Recovered/Not Resolved]
  - Diarrhoea [Not Recovered/Not Resolved]
  - Vomiting [Unknown]
  - Nasopharyngitis [Unknown]
